FAERS Safety Report 10766554 (Version 2)
Quarter: 2015Q1

REPORT INFORMATION
  Report Type: Spontaneous
  Country: DE (occurrence: DE)
  Receive Date: 20150205
  Receipt Date: 20150225
  Transmission Date: 20150721
  Serious: Yes (Other)
  Sender: FDA-Public Use
  Company Number: DE-TEVA-538045GER

PATIENT
  Age: 74 Year
  Sex: Male

DRUGS (1)
  1. METRONIDAZOLE. [Suspect]
     Active Substance: METRONIDAZOLE
     Route: 065

REACTIONS (3)
  - Aphasia [Recovered/Resolved]
  - Hypertensive crisis [Unknown]
  - Cerebral ischaemia [Unknown]
